FAERS Safety Report 8070166-3 (Version None)
Quarter: 2012Q1

REPORT INFORMATION
  Report Type: 
  Country: None (occurrence: None)
  Receive Date: 20120125
  Receipt Date: 20120118
  Transmission Date: 20120608
  Serious: Yes (Death)
  Sender: FDA-Public Use
  Company Number: JP-ROCHE-1018183

PATIENT
  Sex: Female

DRUGS (4)
  1. TRIAZOLAM [Concomitant]
     Indication: INSOMNIA
     Route: 048
  2. PREDNISOLONE [Concomitant]
     Indication: RHEUMATOID ARTHRITIS
     Dosage: DRUG : PREDOHAN
     Route: 048
  3. ISONIAZID [Concomitant]
     Indication: ANTIBIOTIC PROPHYLAXIS
     Route: 048
     Dates: start: 20080514
  4. ACTEMRA [Suspect]
     Indication: RHEUMATOID ARTHRITIS
     Route: 041
     Dates: start: 20080515, end: 20100106

REACTIONS (1)
  - COMPLETED SUICIDE [None]
